FAERS Safety Report 18929914 (Version 2)
Quarter: 2021Q3

REPORT INFORMATION
  Report Type: Spontaneous
  Country: US (occurrence: US)
  Receive Date: 20210223
  Receipt Date: 20210706
  Transmission Date: 20211014
  Serious: Yes (Hospitalization)
  Sender: FDA-Public Use
  Company Number: US-TEVA-2021-US-1882899

PATIENT
  Age: 38 Year
  Sex: Female

DRUGS (2)
  1. ACETAMINOPHEN. [Suspect]
     Active Substance: ACETAMINOPHEN
     Indication: PAIN
     Dosage: FREQUENT INTRANASAL USE OF CRUSHED TABLETS
     Route: 045
  2. FLUCONAZOLE. [Suspect]
     Active Substance: FLUCONAZOLE
     Indication: FUNGAL INFECTION
     Route: 048

REACTIONS (5)
  - Nasal necrosis [Recovered/Resolved]
  - Fungal infection [Recovered/Resolved]
  - Intentional product misuse [Unknown]
  - Sinusitis [Recovered/Resolved]
  - Abdominal discomfort [Unknown]
